FAERS Safety Report 9676890 (Version 6)
Quarter: 2013Q4

REPORT INFORMATION
  Report Type: Spontaneous
  Country: JP (occurrence: JP)
  Receive Date: 20131107
  Receipt Date: 20131210
  Transmission Date: 20140711
  Serious: Yes (Hospitalization)
  Sender: FDA-Public Use
  Company Number: JP-009507513-1311JPN000701

PATIENT
  Age: 65 Year
  Sex: Male
  Weight: 63 kg

DRUGS (8)
  1. ESLAX [Suspect]
     Indication: INDUCTION OF ANAESTHESIA
     Dosage: DAILY DOSE UNKNOWN
     Route: 042
  2. ESLAX [Suspect]
     Indication: NEUROMUSCULAR BLOCKING THERAPY
  3. PROPOFOL [Concomitant]
     Indication: INDUCTION OF ANAESTHESIA
     Dosage: DAILY DOSE UNKNOWN
     Route: 042
  4. FENTANYL CITRATE [Concomitant]
     Indication: INDUCTION OF ANAESTHESIA
     Dosage: DAILY DOSE UNKNOWN
     Route: 042
  5. SEVOFLURANE [Concomitant]
     Indication: MAINTENANCE OF ANAESTHESIA
     Dosage: DAILY DOSE UNKNOWN, INHALATION
     Route: 055
  6. REMIFENTANIL HYDROCHLORIDE [Concomitant]
     Indication: MAINTENANCE OF ANAESTHESIA
     Dosage: DAILY DOSE UNKNOWN
     Route: 042
  7. REMIFENTANIL HYDROCHLORIDE [Concomitant]
     Indication: PROPHYLAXIS
  8. EPHEDRINE HYDROCHLORIDE [Concomitant]
     Indication: PROPHYLAXIS
     Dosage: DAILY DOSAGE UNKNOWN
     Route: 042

REACTIONS (1)
  - Prinzmetal angina [Recovered/Resolved]
